FAERS Safety Report 22302366 (Version 3)
Quarter: 2023Q2

REPORT INFORMATION
  Report Type: Spontaneous
  Country: US (occurrence: US)
  Receive Date: 20230510
  Receipt Date: 20230612
  Transmission Date: 20230721
  Serious: Yes (Life-Threatening, Hospitalization, Other)
  Sender: FDA-Public Use
  Company Number: US-Vifor (International) Inc.-VIT-2023-03335

PATIENT
  Age: 58 Year
  Sex: Female
  Weight: 97.5 kg

DRUGS (8)
  1. MIRCERA [Suspect]
     Active Substance: METHOXY POLYETHYLENE GLYCOL-EPOETIN BETA
     Indication: Anaemia
     Dosage: FIRST DOSE, BI-WEEKLY
     Route: 040
     Dates: start: 20230421, end: 20230421
  2. MIRCERA [Suspect]
     Active Substance: METHOXY POLYETHYLENE GLYCOL-EPOETIN BETA
     Dosage: SECOND DOSE, BI-WEEKLY
     Route: 040
     Dates: start: 20230501, end: 20230501
  3. VENOFER [Suspect]
     Active Substance: IRON SUCROSE
     Indication: Product used for unknown indication
     Route: 042
  4. VENOFER [Suspect]
     Active Substance: IRON SUCROSE
     Dosage: 50 MG SALINE FLUSHED (NOT ALL PUSHED)
     Route: 041
     Dates: start: 20230501
  5. CALCITRIOL [Concomitant]
     Active Substance: CALCITRIOL
     Route: 048
  6. LIQUACEL [Concomitant]
     Dosage: 1 SERVING
     Route: 048
  7. OXYGEN [Concomitant]
     Active Substance: OXYGEN
     Dosage: 2L/MINUTE
  8. OXYGEN [Concomitant]
     Active Substance: OXYGEN
     Dosage: INCREASE
     Dates: start: 20230421

REACTIONS (14)
  - Drug hypersensitivity [Recovered/Resolved with Sequelae]
  - Unresponsive to stimuli [Recovered/Resolved with Sequelae]
  - Cardio-respiratory arrest [Recovered/Resolved with Sequelae]
  - Eye movement disorder [Recovered/Resolved with Sequelae]
  - Blood pressure increased [Recovered/Resolved with Sequelae]
  - Feeling hot [Recovered/Resolved with Sequelae]
  - Panic reaction [Recovered/Resolved with Sequelae]
  - Respiratory rate increased [Recovered/Resolved with Sequelae]
  - Hyperhidrosis [Recovered/Resolved with Sequelae]
  - Loss of consciousness [Recovered/Resolved with Sequelae]
  - Agonal respiration [Recovered/Resolved with Sequelae]
  - Pulse absent [Recovered/Resolved with Sequelae]
  - Cold sweat [Recovered/Resolved with Sequelae]
  - Flushing [Recovered/Resolved with Sequelae]

NARRATIVE: CASE EVENT DATE: 20230421
